FAERS Safety Report 5390018-7 (Version None)
Quarter: 2007Q3

REPORT INFORMATION
  Report Type: 
  Country: None (occurrence: None)
  Receive Date: 20070713
  Receipt Date: 20070702
  Transmission Date: 20080115
  Serious: Yes (Other)
  Sender: FDA-Public Use
  Company Number: GXKR2007JP04614

PATIENT
  Age: 77 Year
  Sex: Female

DRUGS (6)
  1. RIFAMPICIN [Suspect]
     Indication: DISSEMINATED TUBERCULOSIS
     Dosage: ORAL
     Route: 048
     Dates: start: 20060301, end: 20060701
  2. ISONIAZID [Suspect]
     Indication: DISSEMINATED TUBERCULOSIS
     Dosage: ORAL
     Route: 048
     Dates: start: 20060301
  3. PYRAZINAMIDE [Suspect]
     Indication: DISSEMINATED TUBERCULOSIS
     Dosage: ORAL
     Route: 048
     Dates: start: 20060301, end: 20060501
  4. STREPTOMYCIN SULFATE [Suspect]
     Indication: DISSEMINATED TUBERCULOSIS
     Dosage: INTRAMUSCULAR
     Route: 030
     Dates: start: 20060301, end: 20060401
  5. PREDNISOLONE [Concomitant]
  6. LEVOFLOXACIN [Concomitant]

REACTIONS (3)
  - GENERAL PHYSICAL HEALTH DETERIORATION [None]
  - NEPHROTIC SYNDROME [None]
  - PYREXIA [None]
